FAERS Safety Report 9277288 (Version 1)
Quarter: 2013Q2

REPORT INFORMATION
  Report Type: Spontaneous
  Country: US (occurrence: None)
  Receive Date: 20130502
  Receipt Date: 20130502
  Transmission Date: 20140414
  Serious: No
  Sender: FDA-Public Use
  Company Number: None

PATIENT
  Age: 41 Year
  Sex: Female

DRUGS (1)
  1. INTEGRA F [Suspect]
     Route: 048

REACTIONS (3)
  - Skin fissures [None]
  - Erythema [None]
  - Nasal disorder [None]
